FAERS Safety Report 7049637 (Version 2)
Quarter: 2020Q3

REPORT INFORMATION
  Report Type: Spontaneous
  Country: IN (occurrence: IN)
  Receive Date: 20090714
  Receipt Date: 20200821
  Transmission Date: 20201103
  Serious: Yes (Hospitalization, Other)
  Sender: FDA-Public Use
  Company Number: IN-PFIZER INC-2009235055

PATIENT
  Age: 22 Year
  Sex: Female
  Weight: 38 kg

DRUGS (2)
  1. PHENYTOIN. [Suspect]
     Active Substance: PHENYTOIN
     Dosage: 300 MG, 1X/DAY
  2. PHENYTOIN. [Suspect]
     Active Substance: PHENYTOIN
     Indication: EPILEPSY
     Dosage: UNK UNK, 1X/DAY (200 TO 300MG A DAY)

REACTIONS (13)
  - Fracture [Unknown]
  - Lymphadenopathy [Recovered/Resolved]
  - Osteomalacia [Unknown]
  - Hirsutism [Recovering/Resolving]
  - Acne [Recovering/Resolving]
  - Nystagmus [Recovered/Resolved]
  - Bone pain [Unknown]
  - Treatment noncompliance [Recovered/Resolved]
  - Ataxia [Recovered/Resolved]
  - Toxicity to various agents [Recovered/Resolved]
  - Anaemia [Recovering/Resolving]
  - Gingival hypertrophy [Recovering/Resolving]
  - Sedation complication [Recovered/Resolved]
